FAERS Safety Report 24787830 (Version 1)
Quarter: 2024Q4

REPORT INFORMATION
  Report Type: Spontaneous
  Country: US (occurrence: US)
  Receive Date: 20241230
  Receipt Date: 20241230
  Transmission Date: 20250115
  Serious: Yes (Other)
  Sender: SUNOVION
  Company Number: US-SUMITOMO PHARMA SWITZERLAND GMBH-2024SPA006702

PATIENT

DRUGS (1)
  1. GEMTESA [Suspect]
     Active Substance: VIBEGRON
     Indication: Hypertonic bladder
     Dosage: 75 MG, QD
     Route: 048
     Dates: start: 2023, end: 202412

REACTIONS (9)
  - Parkinson^s disease [Unknown]
  - Asthenia [Unknown]
  - Prostatic disorder [Unknown]
  - Cardiac disorder [Unknown]
  - Feeling abnormal [Unknown]
  - Balance disorder [Unknown]
  - Abnormal faeces [Unknown]
  - Product packaging quantity issue [Unknown]
  - Product dose omission issue [Unknown]
